FAERS Safety Report 18029297 (Version 1)
Quarter: 2020Q3

REPORT INFORMATION
  Report Type: Report from Study
  Country: None (occurrence: DE)
  Receive Date: 20200716
  Receipt Date: 20200716
  Transmission Date: 20201103
  Serious: Yes (Hospitalization)
  Sender: FDA-Public Use
  Company Number: DE-ABBVIE-20K-062-3484421-00

PATIENT
  Age: 32 Year
  Sex: Male
  Weight: 143 kg

DRUGS (1)
  1. SKYRIZI [Suspect]
     Active Substance: RISANKIZUMAB-RZAA
     Indication: PSORIASIS
     Route: 058
     Dates: start: 201905, end: 202001

REACTIONS (2)
  - Treatment noncompliance [Unknown]
  - Psoriasis [Unknown]

NARRATIVE: CASE EVENT DATE: 20200707
